FAERS Safety Report 22077273 (Version 2)
Quarter: 2023Q4

REPORT INFORMATION
  Report Type: Report from Study
  Country: GB (occurrence: GB)
  Receive Date: 20230309
  Receipt Date: 20231117
  Transmission Date: 20240110
  Serious: Yes (Other)
  Sender: FDA-Public Use
  Company Number: GB-BRISTOL-MYERS SQUIBB COMPANY-2023-002526

PATIENT

DRUGS (23)
  1. DEXAMETHASONE [Suspect]
     Active Substance: DEXAMETHASONE
     Indication: Plasma cell myeloma
     Dosage: 20 MG, 1 DOSE WEEKLY
     Route: 048
     Dates: start: 20201008, end: 20210113
  2. REVLIMID [Suspect]
     Active Substance: LENALIDOMIDE
     Indication: Plasma cell myeloma
     Dosage: 25 MG
     Route: 048
     Dates: start: 20210903, end: 20210923
  3. REVLIMID [Suspect]
     Active Substance: LENALIDOMIDE
     Dosage: 25 MG,FREQUENCY QAM
     Route: 048
     Dates: start: 20201112, end: 20201202
  4. REVLIMID [Suspect]
     Active Substance: LENALIDOMIDE
     Dosage: 25 MG
     Route: 048
     Dates: start: 20201029, end: 20201104
  5. REVLIMID [Suspect]
     Active Substance: LENALIDOMIDE
     Dosage: UNK
     Route: 048
     Dates: start: 20201203, end: 20201209
  6. REVLIMID [Suspect]
     Active Substance: LENALIDOMIDE
     Dosage: 10 MG,FREQUENCY QPM
     Route: 048
     Dates: start: 20220708, end: 20220728
  7. REVLIMID [Suspect]
     Active Substance: LENALIDOMIDE
     Dosage: 20 MG,FREQUENCY QPM
     Route: 048
     Dates: start: 20220415, end: 20220505
  8. REVLIMID [Suspect]
     Active Substance: LENALIDOMIDE
     Dosage: 15 MG,FREQUENCY QPM
     Route: 048
     Dates: start: 20220513, end: 20220602
  9. REVLIMID [Suspect]
     Active Substance: LENALIDOMIDE
     Dosage: 20 MG,FREQUENCY QPM
     Route: 048
     Dates: start: 20220318, end: 20220407
  10. REVLIMID [Suspect]
     Active Substance: LENALIDOMIDE
     Dosage: UNK
     Route: 048
     Dates: start: 20201231, end: 20210106
  11. REVLIMID [Suspect]
     Active Substance: LENALIDOMIDE
     Dosage: 10 MG,FREQUENCY QOD
     Route: 048
     Dates: start: 20220902, end: 20220922
  12. REVLIMID [Suspect]
     Active Substance: LENALIDOMIDE
     Dosage: 25 MG
     Route: 048
     Dates: start: 20210702, end: 20210722
  13. REVLIMID [Suspect]
     Active Substance: LENALIDOMIDE
     Dosage: 25 MG,FREQUENCY QAM
     Route: 048
     Dates: start: 20201210, end: 20201230
  14. REVLIMID [Suspect]
     Active Substance: LENALIDOMIDE
     Dosage: 25 MG,FREQUENCY QAM
     Route: 048
     Dates: start: 20201008, end: 20201028
  15. REVLIMID [Suspect]
     Active Substance: LENALIDOMIDE
     Dosage: 25 MG
     Route: 048
     Dates: start: 20210730, end: 20210819
  16. REVLIMID [Suspect]
     Active Substance: LENALIDOMIDE
     Dosage: 15 MG,FREQUENCY QPM
     Route: 048
     Dates: start: 20220610, end: 20220630
  17. REVLIMID [Suspect]
     Active Substance: LENALIDOMIDE
     Dosage: 25 MG,FREQUENCY QAM
     Route: 048
     Dates: start: 20210107, end: 20210127
  18. REVLIMID [Suspect]
     Active Substance: LENALIDOMIDE
     Dosage: 25 MG,FREQUENCY QAM
     Route: 048
     Dates: start: 20210409, end: 20210429
  19. REVLIMID [Suspect]
     Active Substance: LENALIDOMIDE
     Dosage: 25 MG,FREQUENCY QAM
     Route: 048
     Dates: start: 20210604, end: 20210624
  20. REVLIMID [Suspect]
     Active Substance: LENALIDOMIDE
     Dosage: 25 MG,FREQUENCY QAM
     Route: 048
     Dates: start: 20210507, end: 20210527
  21. REVLIMID [Suspect]
     Active Substance: LENALIDOMIDE
     Dosage: 10 MG, ON ALTERNATE DAY
     Route: 048
     Dates: start: 20210507, end: 20210527
  22. REVLIMID [Suspect]
     Active Substance: LENALIDOMIDE
     Dosage: 10 MG, 2 DOSE DAILY
     Route: 065
  23. POMALIDOMIDE [Suspect]
     Active Substance: POMALIDOMIDE
     Indication: Plasma cell myeloma
     Dosage: UNK
     Route: 065

REACTIONS (6)
  - Off label use [Unknown]
  - Thrombocytopenia [Recovered/Resolved]
  - Neutropenia [Recovered/Resolved]
  - Leukopenia [Recovered/Resolved]
  - Renal impairment [Not Recovered/Not Resolved]
  - Anaemia [Not Recovered/Not Resolved]

NARRATIVE: CASE EVENT DATE: 20220114
